FAERS Safety Report 7727166-X (Version None)
Quarter: 2011Q3

REPORT INFORMATION
  Report Type: 
  Country: None (occurrence: None)
  Receive Date: 20110902
  Receipt Date: 20110825
  Transmission Date: 20111222
  Serious: Yes (Hospitalization)
  Sender: FDA-Public Use
  Company Number: KR-ELI_LILLY_AND_COMPANY-KR201108008134

PATIENT
  Age: 41 Year
  Sex: Male
  Weight: 66 kg

DRUGS (2)
  1. HUMALOG MIX 75/25 [Suspect]
     Dosage: 20 U, EACH EVENING
     Dates: start: 20110406
  2. HUMALOG MIX 75/25 [Suspect]
     Indication: DIABETES MELLITUS
     Dosage: 18 U, EACH MORNING
     Dates: start: 20110406

REACTIONS (4)
  - NECK PAIN [None]
  - NECK INJURY [None]
  - INFLAMMATION [None]
  - ROAD TRAFFIC ACCIDENT [None]
